FAERS Safety Report 22340488 (Version 3)
Quarter: 2023Q2

REPORT INFORMATION
  Report Type: Spontaneous
  Country: AU (occurrence: None)
  Receive Date: 20230518
  Receipt Date: 20230603
  Transmission Date: 20230721
  Serious: Yes (Other)
  Sender: FDA-Public Use
  Company Number: AU-ROCHE-3351695

PATIENT
  Sex: Female
  Weight: 59 kg

DRUGS (2)
  1. GAZYVA [Suspect]
     Active Substance: OBINUTUZUMAB
     Indication: Follicular lymphoma stage II
     Dosage: 3 CYCLES, RECOMMENDED 2 YRS OF MAINTENANCE, LAST DATE TOOK 01/MAY/2023.
     Route: 065
     Dates: start: 20211007
  2. BENDAMUSTINE [Suspect]
     Active Substance: BENDAMUSTINE
     Indication: Follicular lymphoma stage II
     Route: 065

REACTIONS (2)
  - Immune thrombocytopenia [Unknown]
  - Neutropenia [Unknown]
